FAERS Safety Report 8901973 (Version 1)
Quarter: 2012Q4

REPORT INFORMATION
  Report Type: 
  Country: US (occurrence: US)
  Receive Date: 20121112
  Receipt Date: 20121112
  Transmission Date: 20130627
  Serious: Yes (Other)
  Sender: FDA-Public Use
  Company Number: US-BAYER-2012-116072

PATIENT
  Age: 30 Year
  Weight: 125.62 kg

DRUGS (4)
  1. YASMIN [Suspect]
  2. BACTRIM DS [Concomitant]
     Indication: CELLULITIS
     Dosage: UNK
     Dates: start: 20070821
  3. CYMBALTA [Concomitant]
     Indication: REACTIVE DEPRESSION
     Dosage: UNK
     Dates: start: 20070821
  4. BABY ASPIRIN [Concomitant]

REACTIONS (2)
  - Deep vein thrombosis [None]
  - Thrombophlebitis superficial [None]
